FAERS Safety Report 20725453 (Version 3)
Quarter: 2022Q2

REPORT INFORMATION
  Report Type: Spontaneous
  Country: US (occurrence: US)
  Receive Date: 20220419
  Receipt Date: 20220524
  Transmission Date: 20220720
  Serious: Yes (Other)
  Sender: FDA-Public Use
  Company Number: US-ORGANON-O2204USA001290

PATIENT
  Age: 15 Year
  Sex: Female
  Weight: 68.934 kg

DRUGS (1)
  1. NEXPLANON [Suspect]
     Active Substance: ETONOGESTREL
     Indication: Menstrual cycle management
     Dosage: 1 IMPLANT IN LEFT UPPER ARM, EVERY THREE YEARS
     Route: 058
     Dates: start: 20220412, end: 20220412

REACTIONS (4)
  - Device expulsion [Recovered/Resolved]
  - Discomfort [Unknown]
  - Implant site injury [Unknown]
  - Product use in unapproved indication [Unknown]

NARRATIVE: CASE EVENT DATE: 20220412
